FAERS Safety Report 6126614-9 (Version None)
Quarter: 2009Q1

REPORT INFORMATION
  Report Type: 
  Country: None (occurrence: None)
  Receive Date: 20090320
  Receipt Date: 20090120
  Transmission Date: 20090719
  Serious: Yes (Hospitalization)
  Sender: FDA-Public Use
  Company Number: US-PFIZER INC-2009179930

PATIENT
  Sex: Female

DRUGS (15)
  1. CELEBREX [Suspect]
     Indication: OSTEOARTHRITIS
     Dosage: 200 MG, 1X/DAY
     Route: 048
     Dates: start: 20080226, end: 20090113
  2. DONEPEZIL HYDROCHLORIDE [Suspect]
     Indication: DEMENTIA ALZHEIMER'S TYPE
     Dosage: 10 MG, 1X/DAY
     Route: 048
     Dates: start: 20081226, end: 20090113
  3. DONEPEZIL HYDROCHLORIDE [Suspect]
     Dosage: 5 MG, 1X/DAY
     Route: 048
     Dates: start: 20081107, end: 20081225
  4. POTASSIUM CHLORIDE [Concomitant]
  5. METOPROLOL [Concomitant]
  6. LACTINEX [Concomitant]
  7. AMLODIPINE [Concomitant]
  8. DIOVAN [Concomitant]
  9. PROZAC [Concomitant]
  10. MULTI-VITAMINS [Concomitant]
  11. PROTONIX [Concomitant]
  12. LEVOTHYROXINE [Concomitant]
  13. HYDROCHLOROTHIAZIDE [Concomitant]
  14. ANASTROZOLE [Concomitant]
  15. FUROSEMIDE [Concomitant]

REACTIONS (2)
  - COMPRESSION FRACTURE [None]
  - RENAL FAILURE ACUTE [None]
